FAERS Safety Report 9519260 (Version 1)
Quarter: 2013Q1

REPORT INFORMATION
  Report Type: Spontaneous
  Country: US (occurrence: None)
  Receive Date: 20130305
  Receipt Date: 20130305
  Transmission Date: 20140127
  Serious: Yes (Other)
  Sender: FDA-Public Use
  Company Number: 163-21880-12103612

PATIENT
  Age: 70 Year
  Sex: Male
  Weight: 88 kg

DRUGS (4)
  1. REVLIMID [Suspect]
     Indication: PLASMA CELL MYELOMA
     Route: 048
     Dates: start: 201206, end: 201206
  2. LANTUS (INSULIN GLARGINE) [Concomitant]
  3. AVAPRO (IRBESARTAN) [Concomitant]
  4. GABAPENTIN [Concomitant]

REACTIONS (4)
  - Local swelling [None]
  - Fatigue [None]
  - Drug dose omission [None]
  - Treatment noncompliance [None]
